FAERS Safety Report 6881477-9 (Version None)
Quarter: 2010Q3

REPORT INFORMATION
  Report Type: 
  Country: None (occurrence: None)
  Receive Date: 20100729
  Receipt Date: 20100727
  Transmission Date: 20110219
  Serious: Yes (Other)
  Sender: FDA-Public Use
  Company Number: US-SP-2010-03555

PATIENT
  Sex: Male

DRUGS (1)
  1. TUBERSOL [Suspect]
     Indication: TUBERCULIN TEST
     Route: 023
     Dates: start: 20100622, end: 20100622

REACTIONS (3)
  - DIZZINESS [None]
  - DYSPHAGIA [None]
  - DYSPNOEA [None]
